FAERS Safety Report 6387829-8 (Version None)
Quarter: 2009Q4

REPORT INFORMATION
  Report Type: 
  Country: None (occurrence: None)
  Receive Date: 20091005
  Receipt Date: 20090923
  Transmission Date: 20100525
  Serious: Yes (Death, Life-Threatening, Hospitalization)
  Sender: FDA-Public Use
  Company Number: BR-ELI_LILLY_AND_COMPANY-BR200909001880

PATIENT
  Sex: Female

DRUGS (3)
  1. FORTEO [Suspect]
     Indication: OSTEOPOROSIS
     Dosage: 20 UG, 2/D
     Route: 058
     Dates: start: 20081201, end: 20090101
  2. PLASIL [Concomitant]
     Indication: COUGH
     Dosage: UNK, UNKNOWN
     Route: 065
  3. RIVOTRIL [Concomitant]
     Dosage: UNK, UNKNOWN
     Route: 065

REACTIONS (8)
  - BRONCHITIS CHRONIC [None]
  - COUGH [None]
  - DIZZINESS [None]
  - DYSPNOEA [None]
  - HYPOTENSION [None]
  - PNEUMONIA BACTERIAL [None]
  - RENAL FAILURE ACUTE [None]
  - SEPTIC SHOCK [None]
